FAERS Safety Report 8507963-3 (Version None)
Quarter: 2012Q3

REPORT INFORMATION
  Report Type: 
  Country: None (occurrence: None)
  Receive Date: 20120713
  Receipt Date: 20120710
  Transmission Date: 20120928
  Serious: Yes (Hospitalization)
  Sender: FDA-Public Use
  Company Number: DE-BAYER-2011-108826

PATIENT
  Age: 41 Year
  Sex: Female
  Weight: 111 kg

DRUGS (2)
  1. METOPROLOL TARTRATE [Concomitant]
     Indication: BLOOD PRESSURE INCREASED
  2. YASMIN [Suspect]
     Dosage: UNK
     Dates: start: 20080801, end: 20080901

REACTIONS (2)
  - OEDEMA PERIPHERAL [None]
  - DEEP VEIN THROMBOSIS [None]
